FAERS Safety Report 19189713 (Version 2)
Quarter: 2021Q4

REPORT INFORMATION
  Report Type: Spontaneous
  Country: CA (occurrence: CA)
  Receive Date: 20210428
  Receipt Date: 20211019
  Transmission Date: 20220303
  Serious: Yes (Life-Threatening, Hospitalization)
  Sender: FDA-Public Use
  Company Number: CA-PFIZER INC-2021423089

PATIENT
  Age: 14 Year
  Sex: Female
  Weight: 50 kg

DRUGS (14)
  1. SUTENT [Suspect]
     Active Substance: SUNITINIB MALATE
     Indication: Thymoma
     Dosage: 25 MG
     Route: 048
  2. SUTENT [Suspect]
     Active Substance: SUNITINIB MALATE
     Dosage: 50 MG
     Route: 048
  3. CALCIUM [Concomitant]
     Active Substance: CALCIUM
  4. CEFOTAXIME [Concomitant]
     Active Substance: CEFOTAXIME SODIUM
  5. CHOLECALCIFEROL [Concomitant]
     Active Substance: CHOLECALCIFEROL
  6. GABAPENTIN [Concomitant]
     Active Substance: GABAPENTIN
  7. MAGNESIUM [Concomitant]
     Active Substance: MAGNESIUM
  8. ONDANSETRON [Concomitant]
     Active Substance: ONDANSETRON
  9. POTASSIUM [Concomitant]
     Active Substance: POTASSIUM
  10. SODIUM PHOSPHATE [Concomitant]
     Active Substance: SODIUM PHOSPHATE
  11. SULFAMETHOXAZOLE\TRIMETHOPRIM [Concomitant]
     Active Substance: SULFAMETHOXAZOLE\TRIMETHOPRIM
  12. VALACYCLOVIR HYDROCHLORIDE [Concomitant]
     Active Substance: VALACYCLOVIR HYDROCHLORIDE
  13. VANCOMYCIN [Concomitant]
     Active Substance: VANCOMYCIN
  14. ZINC [Concomitant]
     Active Substance: ZINC

REACTIONS (15)
  - Abdominal pain [Recovered/Resolved]
  - Aplasia [Recovered/Resolved]
  - Bicytopenia [Recovered/Resolved]
  - Chills [Recovered/Resolved]
  - Diarrhoea [Recovered/Resolved]
  - Dyspnoea [Recovered/Resolved]
  - Generalised oedema [Recovered/Resolved]
  - Haemoglobin decreased [Recovered/Resolved]
  - Hypothyroidism [Recovered/Resolved]
  - Oedema [Recovered/Resolved]
  - Platelet count decreased [Recovered/Resolved]
  - Pyrexia [Recovered/Resolved]
  - Yellow skin [Recovered/Resolved]
  - Off label use [Unknown]
  - Off label use [Unknown]
